FAERS Safety Report 8893943 (Version 1)
Quarter: 2012Q4

REPORT INFORMATION
  Report Type: 
  Country: CA (occurrence: CA)
  Receive Date: 20121107
  Receipt Date: 20121107
  Transmission Date: 20130627
  Serious: Yes (Other)
  Sender: FDA-Public Use
  Company Number: PHHY2001CA003114

PATIENT
  Age: 63 Year
  Sex: Male

DRUGS (2)
  1. EXELON [Suspect]
     Dosage: 1.5 mg, BID
     Dates: start: 20001213
  2. EXELON [Suspect]
     Dosage: 3.0 mg, BID

REACTIONS (8)
  - Paranoia [Not Recovered/Not Resolved]
  - Aggression [Not Recovered/Not Resolved]
  - Libido increased [Recovered/Resolved]
  - Confusional state [Recovered/Resolved]
  - Hyperhidrosis [Recovered/Resolved]
  - Insomnia [Recovered/Resolved]
  - Restlessness [Recovered/Resolved]
  - Weight decreased [Not Recovered/Not Resolved]
